FAERS Safety Report 19638664 (Version 1)
Quarter: 2021Q3

REPORT INFORMATION
  Report Type: Spontaneous
  Country: US (occurrence: US)
  Receive Date: 20210729
  Receipt Date: 20210729
  Transmission Date: 20211014
  Serious: Yes (Hospitalization, Other)
  Sender: FDA-Public Use
  Company Number: US-PFIZER INC-202100916955

PATIENT
  Sex: Female

DRUGS (5)
  1. NEURONTIN [Suspect]
     Active Substance: GABAPENTIN
     Indication: ANXIETY
     Dosage: 300 MG, 2X/DAY
  2. ZOLOFT [Concomitant]
     Active Substance: SERTRALINE HYDROCHLORIDE
     Indication: DEPRESSION
     Dosage: 75 MG, 1X/DAY(TAKES A 50MG TABLET AND A 25MG TABLET)
  3. WELLBUTRIN [Concomitant]
     Active Substance: BUPROPION HYDROCHLORIDE
     Indication: DEPRESSION
     Dosage: UNK
  4. LORAZEPAM. [Concomitant]
     Active Substance: LORAZEPAM
     Indication: DEPRESSION
     Dosage: 0.5 MG, 2X/DAY
  5. LIPITOR [Concomitant]
     Active Substance: ATORVASTATIN CALCIUM
     Indication: CARDIAC DISORDER
     Dosage: UNK

REACTIONS (13)
  - Confusional state [Unknown]
  - Dysphagia [Unknown]
  - Feeling abnormal [Unknown]
  - Emotional disorder [Unknown]
  - Amnesia [Unknown]
  - Negative thoughts [Unknown]
  - Depression [Unknown]
  - Off label use [Unknown]
  - Dizziness [Unknown]
  - Fall [Unknown]
  - Blood sodium decreased [Not Recovered/Not Resolved]
  - Obsessive-compulsive disorder [Unknown]
  - Psychiatric symptom [Unknown]
